FAERS Safety Report 8078271-2 (Version None)
Quarter: 2012Q1

REPORT INFORMATION
  Report Type: 
  Country: None (occurrence: None)
  Receive Date: 20120123
  Receipt Date: 20120109
  Transmission Date: 20120608
  Serious: Yes (Death, Life-Threatening, Hospitalization, Other)
  Sender: FDA-Public Use
  Company Number: 2012MA000443

PATIENT
  Sex: Male
  Weight: 74.8435 kg

DRUGS (20)
  1. CIPROFLOXACIN [Concomitant]
  2. AUGMENTIN '125' [Concomitant]
  3. DILAUDID [Concomitant]
  4. EPINEPHRINE [Concomitant]
  5. COLACE [Concomitant]
  6. RHINOCORT [Concomitant]
  7. ASPIRIN [Concomitant]
  8. ATROPINE [Concomitant]
  9. NIPRIDE [Concomitant]
  10. ISINOPSIL [Concomitant]
  11. XOPENEX [Concomitant]
  12. CLARITIN-D [Concomitant]
  13. BETAPACE [Concomitant]
  14. DELTASONE [Concomitant]
  15. MULTIPLE VITAMIN [Concomitant]
  16. PRINIVIL [Concomitant]
  17. DIGOXIN [Suspect]
     Indication: PRODUCT USED FOR UNKNOWN INDICATION
     Dosage: 0.125 MG;QD;PO
     Route: 048
     Dates: start: 20070305, end: 20070411
  18. ARMODAFINIL [Concomitant]
  19. NORVASC [Concomitant]
  20. LACTOBACILLUS ACIDOPHILUS [Concomitant]

REACTIONS (27)
  - DEHYDRATION [None]
  - PARAESTHESIA [None]
  - ASTHENIA [None]
  - BURNING SENSATION [None]
  - DYSPNOEA [None]
  - ACUTE RESPIRATORY FAILURE [None]
  - ACUTE LUNG INJURY [None]
  - ABDOMINAL PAIN [None]
  - APATHY [None]
  - HYPOAESTHESIA [None]
  - CARDIAC ARREST [None]
  - BACK PAIN [None]
  - INTERSTITIAL LUNG DISEASE [None]
  - CLOSTRIDIUM DIFFICILE COLITIS [None]
  - FATIGUE [None]
  - METASTATIC NEOPLASM [None]
  - PNEUMONIA [None]
  - LABILE BLOOD PRESSURE [None]
  - DIARRHOEA [None]
  - VENTRICULAR EXTRASYSTOLES [None]
  - VOMITING [None]
  - PULMONARY FIBROSIS [None]
  - GUILLAIN-BARRE SYNDROME [None]
  - HYPERHIDROSIS [None]
  - ATRIAL FIBRILLATION [None]
  - AORTIC ANEURYSM [None]
  - OSTEOSCLEROSIS [None]
